FAERS Safety Report 4929029-1 (Version None)
Quarter: 2006Q1

REPORT INFORMATION
  Report Type: 
  Country: None (occurrence: None)
  Receive Date: 20060301
  Receipt Date: 20060221
  Transmission Date: 20060701
  Serious: Yes (Life-Threatening, Hospitalization)
  Sender: FDA-Public Use
  Company Number: ES-MERCK-0602ESP00057

PATIENT
  Age: 75 Year
  Sex: Female

DRUGS (1)
  1. COZAAR [Suspect]
     Route: 048
     Dates: end: 20050108

REACTIONS (3)
  - HEPATITIS CHOLESTATIC [None]
  - HYPERBILIRUBINAEMIA [None]
  - JAUNDICE [None]
